FAERS Safety Report 8443439-X (Version None)
Quarter: 2012Q2

REPORT INFORMATION
  Report Type: 
  Country: None (occurrence: None)
  Receive Date: 20120618
  Receipt Date: 20120606
  Transmission Date: 20120825
  Serious: Yes (Hospitalization, Disabling, Other)
  Sender: FDA-Public Use
  Company Number: US-CELGENEUS-163-21880-12033541

PATIENT
  Sex: Male

DRUGS (26)
  1. PENICILLIN V POTASSIUM [Concomitant]
     Dosage: 500 MILLIGRAM
     Route: 048
     Dates: start: 20120306
  2. TRIAMCINOLONE ACETONIDE [Concomitant]
     Dosage: .1 PERCENT
     Route: 061
     Dates: start: 20110913
  3. XANAX [Concomitant]
     Route: 065
  4. GUAIFENESIN [Concomitant]
     Dosage: 600 MILLIGRAM
     Route: 048
     Dates: start: 20101214
  5. MULTI-VITAMINS [Concomitant]
     Dosage: 1 TABLET
     Route: 048
     Dates: start: 20090818
  6. CELEXA [Concomitant]
     Route: 065
  7. LIDOCAINE [Concomitant]
     Indication: PAIN
     Dosage: 200 MILLILITER
     Route: 048
     Dates: start: 20120306
  8. ACYCLOVIR [Concomitant]
     Dosage: 400 MILLIGRAM
     Route: 048
     Dates: start: 20111228
  9. CHLORHEXIDINE GLUCONATE [Concomitant]
     Route: 065
  10. FENTANYL [Concomitant]
     Route: 065
  11. CITALOPRAM [Concomitant]
     Dosage: 20 MILLIGRAM
     Route: 048
     Dates: start: 20111228
  12. ZOMETA [Concomitant]
     Route: 065
     Dates: start: 20110101, end: 20111201
  13. REVLIMID [Suspect]
     Dosage: 25 MILLIGRAM
     Route: 048
     Dates: start: 20110111, end: 20110405
  14. GABAPENTIN [Concomitant]
     Dosage: 300 MILLIGRAM
     Route: 048
     Dates: start: 20111228
  15. MACROBID [Concomitant]
     Route: 065
  16. OXYCODONE/ACETAMINOPHEN [Concomitant]
     Route: 065
  17. POTASSIUM CHLORIDE [Concomitant]
     Route: 065
  18. REVLIMID [Suspect]
     Dosage: 10 MILLIGRAM
     Route: 048
     Dates: start: 20110401, end: 20120301
  19. ALPRAZOLAM [Concomitant]
     Indication: ANXIETY
     Dosage: 1-2 TABLETS
     Route: 048
     Dates: start: 20120306
  20. NITROFURANTOIN [Concomitant]
     Route: 065
  21. AMLODIPINE BESYLATE [Concomitant]
     Route: 065
  22. SODIUM CHLORIDE [Concomitant]
     Route: 065
  23. PANTOPRAZOLE [Concomitant]
     Dosage: 40 MILLIGRAM
     Route: 048
     Dates: start: 20120307
  24. METOPROLOL SUCCINATE [Concomitant]
     Dosage: 100 MILLIGRAM
     Route: 048
     Dates: start: 20111228
  25. ASPIRIN [Concomitant]
     Dosage: 325 MILLIGRAM
     Route: 048
  26. IBUPROFEN [Concomitant]
     Route: 065

REACTIONS (3)
  - ASTHENIA [None]
  - PANCYTOPENIA [None]
  - OSTEONECROSIS OF JAW [None]
